FAERS Safety Report 15478610 (Version 1)
Quarter: 2018Q4

REPORT INFORMATION
  Report Type: Spontaneous
  Country: US (occurrence: US)
  Receive Date: 20181009
  Receipt Date: 20181009
  Transmission Date: 20190205
  Serious: Yes (Hospitalization)
  Sender: FDA-Public Use
  Company Number: US-ELI_LILLY_AND_COMPANY-US201809013107

PATIENT
  Sex: Female

DRUGS (3)
  1. HUMALOG KWIKPEN [Suspect]
     Active Substance: INSULIN LISPRO
     Dosage: UNK, UNKNOWN
     Route: 065
  2. HUMULIN R [Suspect]
     Active Substance: INSULIN HUMAN
     Indication: DIABETES MELLITUS
     Dosage: UNK, UNKNOWN
     Route: 065
     Dates: start: 2007
  3. HUMALOG KWIKPEN [Suspect]
     Active Substance: INSULIN LISPRO
     Indication: DIABETES MELLITUS
     Dosage: UNK, UNKNOWN
     Route: 065
     Dates: start: 2016

REACTIONS (12)
  - Blister [Unknown]
  - Blood glucose decreased [Unknown]
  - Alopecia [Not Recovered/Not Resolved]
  - Localised infection [Unknown]
  - Poor peripheral circulation [Unknown]
  - Weight decreased [Unknown]
  - Vein disorder [Unknown]
  - Gangrene [Unknown]
  - Incorrect dose administered [Unknown]
  - Gait disturbance [Unknown]
  - Fistula [Unknown]
  - Localised infection [Unknown]

NARRATIVE: CASE EVENT DATE: 2014
